FAERS Safety Report 5201741-9 (Version None)
Quarter: 2006Q4

REPORT INFORMATION
  Report Type: 
  Country: None (occurrence: None)
  Receive Date: 20061013
  Receipt Date: 20050823
  Transmission Date: 20070319
  Serious: Yes (Other)
  Sender: FDA-Public Use
  Company Number: S05-USA-04192-01

PATIENT
  Age: 26 Year
  Sex: Female

DRUGS (2)
  1. LEXAPRO [Suspect]
     Dosage: 10 MG QD PO
     Route: 048
     Dates: start: 20040430, end: 20040910
  2. WELLBUTRIN [Suspect]
     Indication: MAJOR DEPRESSION
     Dosage: 150 MG QD PO
     Route: 048
     Dates: start: 20040401, end: 20040430

REACTIONS (2)
  - PREGNANCY [None]
  - TACHYCARDIA [None]
